FAERS Safety Report 23270836 (Version 1)
Quarter: 2023Q4

REPORT INFORMATION
  Report Type: Spontaneous
  Country: US (occurrence: US)
  Receive Date: 20231207
  Receipt Date: 20231207
  Transmission Date: 20240110
  Serious: No
  Sender: FDA-Public Use
  Company Number: US-GLENMARK PHARMACEUTICALS-2023GMK082475

PATIENT

DRUGS (1)
  1. NYSTATIN AND TRIAMCINOLONE ACETONIDE [Suspect]
     Active Substance: NYSTATIN\TRIAMCINOLONE ACETONIDE
     Indication: Candida infection
     Dosage: UNK
     Route: 065

REACTIONS (4)
  - Cheilitis [Unknown]
  - Lip exfoliation [Recovering/Resolving]
  - Product administered at inappropriate site [Unknown]
  - Lip dry [Unknown]
